FAERS Safety Report 7201840-6 (Version None)
Quarter: 2010Q4

REPORT INFORMATION
  Report Type: 
  Country: None (occurrence: None)
  Receive Date: 20101215
  Receipt Date: 20101130
  Transmission Date: 20110411
  Serious: Yes (Death, Congenital Anomaly, Other)
  Sender: FDA-Public Use
  Company Number: AUR-APL-2010-03018

PATIENT
  Sex: Female

DRUGS (1)
  1. CITALOPRAM [Suspect]
     Dosage: 20MG-QD-TRANSPLACENTAL
     Route: 064

REACTIONS (2)
  - MATERNAL DRUGS AFFECTING FOETUS [None]
  - PULMONARY ARTERY ATRESIA [None]
